FAERS Safety Report 23165690 (Version 1)
Quarter: 2023Q4

REPORT INFORMATION
  Report Type: Spontaneous
  Country: None (occurrence: US)
  Receive Date: 20231109
  Receipt Date: 20231109
  Transmission Date: 20240110
  Serious: No
  Sender: FDA-Public Use
  Company Number: US-Harrow Eye-2148052

PATIENT
  Age: 85 Year
  Sex: Female

DRUGS (7)
  1. MAXITROL [Suspect]
     Active Substance: DEXAMETHASONE\NEOMYCIN SULFATE\POLYMYXIN B SULFATE
     Indication: Eyelid infection
     Route: 047
     Dates: start: 20230726
  2. DIAZEPAM [Concomitant]
     Active Substance: DIAZEPAM
  3. AMLODIPINE [Concomitant]
     Active Substance: AMLODIPINE BESYLATE
  4. METOPROLOL [Concomitant]
     Active Substance: METOPROLOL
  5. TIMOLOL [Concomitant]
     Active Substance: TIMOLOL
  6. AZOPT [Concomitant]
     Active Substance: BRINZOLAMIDE
  7. TYLENOL [Concomitant]
     Active Substance: ACETAMINOPHEN

REACTIONS (2)
  - Blood pressure increased [Unknown]
  - Dizziness [Unknown]
